FAERS Safety Report 13206401 (Version 1)
Quarter: 2017Q1

REPORT INFORMATION
  Report Type: Spontaneous
  Country: US (occurrence: US)
  Receive Date: 20170208
  Receipt Date: 20170208
  Transmission Date: 20170428
  Serious: Yes (Hospitalization)
  Sender: FDA-Public Use
  Company Number: None

PATIENT
  Age: 73 Year
  Sex: Female

DRUGS (2)
  1. EXJADE [Suspect]
     Active Substance: DEFERASIROX
     Indication: MYELODYSPLASTIC SYNDROME
     Route: 048
     Dates: start: 20160206
  2. EXJADE [Suspect]
     Active Substance: DEFERASIROX
     Indication: MYELODYSPLASTIC SYNDROME
     Dosage: 2QD
     Route: 048
     Dates: start: 20160206

REACTIONS (2)
  - Hospitalisation [None]
  - Hospice care [None]

NARRATIVE: CASE EVENT DATE: 20170206
